FAERS Safety Report 9595504 (Version 1)
Quarter: 2013Q4

REPORT INFORMATION
  Report Type: Spontaneous
  Country: US (occurrence: US)
  Receive Date: 20131004
  Receipt Date: 20131004
  Transmission Date: 20140711
  Serious: No
  Sender: FDA-Public Use
  Company Number: US-PURDUE-USA-2012-0092981

PATIENT
  Sex: Female

DRUGS (3)
  1. BUTRANS [Suspect]
     Indication: FIBROMYALGIA
     Dosage: 10 MCG/HR, UNK
     Route: 062
     Dates: start: 201206
  2. BUTRANS [Suspect]
     Indication: PAIN
  3. HYDROCODONE FILM-COATED TAB (59,175) [Concomitant]
     Indication: BREAKTHROUGH PAIN
     Dosage: 7.5/325 MG DAILY
     Route: 048

REACTIONS (1)
  - Drug ineffective [Not Recovered/Not Resolved]
